FAERS Safety Report 7901719-8 (Version None)
Quarter: 2011Q4

REPORT INFORMATION
  Report Type: 
  Country: None (occurrence: None)
  Receive Date: 20111108
  Receipt Date: 20111028
  Transmission Date: 20120403
  Serious: Yes (Life-Threatening)
  Sender: FDA-Public Use
  Company Number: NL-JNJFOC-20111013229

PATIENT
  Sex: Female
  Weight: 67 kg

DRUGS (8)
  1. VITAMIN D [Concomitant]
     Indication: OSTEOPOROSIS PROPHYLAXIS
  2. ACTONEL [Concomitant]
     Indication: OSTEOPOROSIS PROPHYLAXIS
  3. NEXIUM [Concomitant]
     Indication: GASTROINTESTINAL DISORDER THERAPY
  4. INFLIXIMAB, RECOMBINANT [Suspect]
     Indication: RHEUMATOID ARTHRITIS
     Route: 042
     Dates: start: 20050405, end: 20090901
  5. METHOTREXATE [Concomitant]
     Indication: RHEUMATOID ARTHRITIS
  6. CALCIUM [Concomitant]
     Indication: OSTEOPOROSIS PROPHYLAXIS
  7. THYRAX [Concomitant]
     Indication: THYROID DISORDER
  8. FOLIC ACID [Concomitant]
     Indication: PROPHYLAXIS

REACTIONS (2)
  - METASTASES TO LYMPH NODES [None]
  - TONGUE NEOPLASM MALIGNANT STAGE UNSPECIFIED [None]
